FAERS Safety Report 8091941-5 (Version None)
Quarter: 2012Q1

REPORT INFORMATION
  Report Type: 
  Country: None (occurrence: None)
  Receive Date: 20120129
  Receipt Date: 20111207
  Transmission Date: 20120608
  Serious: No
  Sender: FDA-Public Use
  Company Number: US-ABBOTT-11P-163-0881488-00

PATIENT
  Age: 71 Year
  Sex: Female

DRUGS (3)
  1. HUMIRA [Suspect]
     Indication: CROHN'S DISEASE
     Dosage: LOADING DOSE
     Dates: start: 20111123, end: 20111123
  2. HUMIRA [Suspect]
     Dosage: 2ND DOSE
     Dates: start: 20111207
  3. LISINOPRIL [Concomitant]
     Indication: PRODUCT USED FOR UNKNOWN INDICATION

REACTIONS (5)
  - RHINORRHOEA [None]
  - PYREXIA [None]
  - ABDOMINAL PAIN UPPER [None]
  - VOMITING [None]
  - COUGH [None]
